FAERS Safety Report 7647605-2 (Version None)
Quarter: 2011Q3

REPORT INFORMATION
  Report Type: 
  Country: None (occurrence: None)
  Receive Date: 20110801
  Receipt Date: 20110719
  Transmission Date: 20111222
  Serious: Yes (Hospitalization)
  Sender: FDA-Public Use
  Company Number: DE-JNJFOC-20110709855

PATIENT
  Sex: Female
  Weight: 59.1 kg

DRUGS (5)
  1. MERCAPTOPURINE [Concomitant]
  2. ZINC [Concomitant]
  3. MESALAMINE [Concomitant]
     Route: 048
  4. REMICADE [Suspect]
     Indication: CROHN'S DISEASE
     Route: 042
     Dates: start: 20060302, end: 20090310
  5. FOLIC ACID [Concomitant]

REACTIONS (1)
  - CROHN'S DISEASE [None]
